FAERS Safety Report 7307712-0 (Version None)
Quarter: 2011Q1

REPORT INFORMATION
  Report Type: 
  Country: None (occurrence: None)
  Receive Date: 20110223
  Receipt Date: 20110208
  Transmission Date: 20110831
  Serious: Yes (Other)
  Sender: FDA-Public Use
  Company Number: FR-CELGENEUS-056-21880-11021171

PATIENT
  Age: 79 Year
  Sex: Male
  Weight: 66 kg

DRUGS (4)
  1. REVLIMID [Suspect]
     Route: 048
     Dates: start: 20101113, end: 20101126
  2. RITUXIMAB [Suspect]
     Route: 065
     Dates: end: 20101127
  3. CYTARABINE [Suspect]
     Route: 065
     Dates: end: 20101127
  4. OXALIPLATIN [Suspect]
     Route: 065
     Dates: end: 20101127

REACTIONS (1)
  - GENERAL PHYSICAL HEALTH DETERIORATION [None]
